FAERS Safety Report 8607244 (Version 3)
Quarter: 2013Q4

REPORT INFORMATION
  Report Type: Spontaneous
  Country: US (occurrence: US)
  Receive Date: 20120611
  Receipt Date: 20131204
  Transmission Date: 20140711
  Serious: No
  Sender: FDA-Public Use
  Company Number: US-ASTRAZENECA-2012SE35372

PATIENT
  Age: 822 Month
  Sex: Female
  Weight: 55.3 kg

DRUGS (15)
  1. NEXIUM [Suspect]
     Dosage: 1 OR 2 TIMES A DAY
     Route: 048
  2. PRILOSEC [Suspect]
     Route: 048
  3. KAPIDEX [Concomitant]
  4. PREVACID [Concomitant]
  5. PEPCID [Concomitant]
  6. ZANTAC [Concomitant]
  7. METOPROLOL [Concomitant]
  8. AMLODIPINE [Concomitant]
  9. CLONIDINE [Concomitant]
  10. LOSARTAN [Concomitant]
  11. FOLIC ACID [Concomitant]
  12. LEXAPRO [Concomitant]
  13. LORAZEPAM [Concomitant]
  14. CALCIUM [Concomitant]
  15. VITAMIN D [Concomitant]

REACTIONS (4)
  - Osteoporosis [Unknown]
  - Multiple fractures [Unknown]
  - Osteopenia [Unknown]
  - Glaucoma [Unknown]
